FAERS Safety Report 24190658 (Version 5)
Quarter: 2025Q3

REPORT INFORMATION
  Report Type: Spontaneous
  Country: EU (occurrence: EU)
  Receive Date: 20240808
  Receipt Date: 20250805
  Transmission Date: 20251021
  Serious: Yes (Other)
  Sender: MYLAN
  Company Number: EU-AUROBINDO-AUR-APL-2024-037201

PATIENT
  Age: 25 Year
  Sex: Male

DRUGS (11)
  1. MYCOPHENOLATE MOFETIL [Suspect]
     Active Substance: MYCOPHENOLATE MOFETIL
     Indication: Immunosuppressant drug therapy
     Dosage: 750 MILLIGRAM, BID, 1500 MG QD
  2. MYCOPHENOLATE MOFETIL [Suspect]
     Active Substance: MYCOPHENOLATE MOFETIL
     Dosage: 750 MILLIGRAM, BID (TWICE DAILY)
  3. RIBAVIRIN [Suspect]
     Active Substance: RIBAVIRIN
     Indication: Organising pneumonia
  4. TACROLIMUS [Suspect]
     Active Substance: TACROLIMUS
     Indication: Immunosuppressant drug therapy
  5. PREDNISOLONE [Suspect]
     Active Substance: PREDNISOLONE
     Indication: Immunosuppressant drug therapy
     Dosage: 0.5 MILLIGRAM/KILOGRAM, ONCE A DAY (6+5+6 MILLIGRAM)
  6. PREDNISOLONE [Suspect]
     Active Substance: PREDNISOLONE
  7. PREDNISOLONE [Suspect]
     Active Substance: PREDNISOLONE
     Dosage: 0.5 MILLIGRAM/KILOGRAM, QD
  8. AMPHOTERICIN B [Concomitant]
     Active Substance: AMPHOTERICIN B
     Indication: Infection prophylaxis
  9. LEVOFLOXACIN [Concomitant]
     Active Substance: LEVOFLOXACIN
     Indication: Evidence based treatment
  10. COTRIMOXAZOLE [Concomitant]
     Active Substance: SULFAMETHOXAZOLE\TRIMETHOPRIM
     Indication: Infection prophylaxis
  11. AMOXICILLIN AND CLAVULANATE POTASSIUM [Concomitant]
     Active Substance: AMOXICILLIN\CLAVULANATE POTASSIUM
     Indication: Cough

REACTIONS (4)
  - Organising pneumonia [Recovering/Resolving]
  - Infection in an immunocompromised host [Recovering/Resolving]
  - Metapneumovirus infection [Recovering/Resolving]
  - Off label use [Unknown]
